FAERS Safety Report 4754475-9 (Version None)
Quarter: 2005Q3

REPORT INFORMATION
  Report Type: 
  Country: None (occurrence: None)
  Receive Date: 20050829
  Receipt Date: 20050819
  Transmission Date: 20060218
  Serious: Yes (Hospitalization)
  Sender: FDA-Public Use
  Company Number: PHBS2005CH12141

PATIENT
  Age: 74 Year
  Sex: Male

DRUGS (5)
  1. DIAMICRON [Concomitant]
     Route: 065
  2. DAFALGAN [Concomitant]
     Route: 065
  3. CASODEX [Concomitant]
     Route: 065
  4. PANTOZOL [Concomitant]
     Route: 065
  5. ZOMETA [Suspect]
     Indication: METASTASES TO BONE
     Route: 042
     Dates: end: 20050720

REACTIONS (6)
  - ABASIA [None]
  - ASTHENIA [None]
  - HYPOCALCAEMIA [None]
  - HYPOKALAEMIA [None]
  - METABOLIC ALKALOSIS [None]
  - WALKING DISABILITY [None]
